FAERS Safety Report 5069548-3 (Version None)
Quarter: 2006Q3

REPORT INFORMATION
  Report Type: 
  Country: None (occurrence: None)
  Receive Date: 20060803
  Receipt Date: 20060720
  Transmission Date: 20061208
  Serious: Yes (Hospitalization)
  Sender: FDA-Public Use
  Company Number: US-AMGEN-STX187213

PATIENT
  Sex: Female

DRUGS (1)
  1. ENBREL [Suspect]
     Indication: RHEUMATOID ARTHRITIS
     Route: 058
     Dates: start: 19990701, end: 20060301

REACTIONS (4)
  - ANIMAL BITE [None]
  - IMPAIRED HEALING [None]
  - INFECTION [None]
  - SPINAL COMPRESSION FRACTURE [None]
